FAERS Safety Report 8456758 (Version 4)
Quarter: 2012Q4

REPORT INFORMATION
  Report Type: Report from Study
  Country: DE (occurrence: CN)
  Receive Date: 20120313
  Receipt Date: 20121031
  Transmission Date: 20130627
  Serious: Yes (Death, Life-Threatening, Hospitalization)
  Sender: FDA-Public Use
  Company Number: CN-FRI-1000025366

PATIENT
  Age: 70 Year
  Sex: Male
  Weight: 75 kg

DRUGS (6)
  1. ROFLUMILAST [Suspect]
     Indication: CHRONIC OBSTRUCTIVE PULMONARY DISEASE
     Route: 048
     Dates: start: 20110916, end: 20111029
  2. ROFLUMILAST [Suspect]
     Indication: CHRONIC OBSTRUCTIVE PULMONARY DISEASE
     Route: 048
     Dates: start: 20110916, end: 20111029
  3. TIOTROPIUM BROMIDE [Concomitant]
     Indication: CHRONIC OBSTRUCTIVE PULMONARY DISEASE
     Route: 055
     Dates: start: 200801
  4. TRADITIONAL CHINESE MEDICINE [Concomitant]
     Route: 048
  5. SALBUTAMOL [Concomitant]
     Route: 055
     Dates: start: 20110815, end: 20111027
  6. ROFLUMILAST (SINGLE-BLIND PLACEBO) [Concomitant]
     Dates: start: 20110817, end: 20110915

REACTIONS (2)
  - Hepatitis B [Fatal]
  - Liver injury [Fatal]
